FAERS Safety Report 22016877 (Version 5)
Quarter: 2023Q2

REPORT INFORMATION
  Report Type: Spontaneous
  Country: CO (occurrence: CO)
  Receive Date: 20230221
  Receipt Date: 20230414
  Transmission Date: 20230722
  Serious: No
  Sender: FDA-Public Use
  Company Number: CO-PFIZER INC-PV202300031256

PATIENT
  Age: 14 Year
  Sex: Male

DRUGS (1)
  1. GENOTROPIN [Suspect]
     Active Substance: SOMATROPIN
     Dosage: 1.6 MG, DAILY
     Route: 058
     Dates: start: 2021

REACTIONS (1)
  - Wrong technique in device usage process [Unknown]
